FAERS Safety Report 17877464 (Version 2)
Quarter: 2020Q3

REPORT INFORMATION
  Report Type: Report from Study
  Country: US (occurrence: US)
  Receive Date: 20200609
  Receipt Date: 20200716
  Transmission Date: 20201103
  Serious: Yes (Other)
  Sender: FDA-Public Use
  Company Number: US-GLAXOSMITHKLINE-US2020TSO008980

PATIENT
  Sex: Female
  Weight: 45 kg

DRUGS (3)
  1. NIRAPARIB [Suspect]
     Active Substance: NIRAPARIB
     Indication: OVARIAN CANCER
     Dosage: 200 MG, QD (PM)
     Route: 048
     Dates: start: 20200111
  2. NIRAPARIB [Suspect]
     Active Substance: NIRAPARIB
     Dosage: 200 MG, QD
     Route: 048
  3. PREDNISONE. [Concomitant]
     Active Substance: PREDNISONE
     Indication: PRODUCT USED FOR UNKNOWN INDICATION
     Dosage: UNK

REACTIONS (6)
  - Pelvic pain [Unknown]
  - Blood pressure abnormal [Recovering/Resolving]
  - Malignant neoplasm progression [Unknown]
  - Poor quality sleep [Unknown]
  - Livedo reticularis [Unknown]
  - Heart rate abnormal [Recovering/Resolving]
